FAERS Safety Report 20437992 (Version 2)
Quarter: 2022Q1

REPORT INFORMATION
  Report Type: Spontaneous
  Country: US (occurrence: US)
  Receive Date: 20220207
  Receipt Date: 20220329
  Transmission Date: 20220423
  Serious: Yes (Death, Life-Threatening, Hospitalization, Other)
  Sender: FDA-Public Use
  Company Number: US-OTSUKA-2022_003944

PATIENT
  Age: 31 Year
  Sex: Female

DRUGS (16)
  1. BUSULFEX [Suspect]
     Active Substance: BUSULFAN
     Indication: Bone marrow conditioning regimen
     Dosage: UNK
     Route: 042
     Dates: start: 20150810, end: 20150813
  2. FOLIC ACID [Concomitant]
     Active Substance: FOLIC ACID
     Indication: Sickle cell disease
     Dosage: UNK
     Route: 048
  3. DEPO-PROVERA [Concomitant]
     Active Substance: MEDROXYPROGESTERONE ACETATE
     Indication: Contraception
     Dosage: UNK
     Route: 065
     Dates: start: 20090413
  4. IBUPROFEN [Concomitant]
     Active Substance: IBUPROFEN
     Indication: Pain
     Dosage: 3200 MG (800 MG,EVERY SIX HOURS, AS NEEDED)
     Route: 048
     Dates: start: 20160819
  5. CYCLOBENZAPRINE [Concomitant]
     Active Substance: CYCLOBENZAPRINE
     Indication: Pain
     Dosage: 15 MG (5 MG,3 IN 1 D)
     Route: 048
     Dates: start: 20170117
  6. PREGABALIN [Concomitant]
     Active Substance: PREGABALIN
     Indication: Pain
     Dosage: 300 MG (150 MG,2 IN 1 D)
     Route: 048
     Dates: start: 20150904
  7. ROXICODONE [Concomitant]
     Active Substance: OXYCODONE HYDROCHLORIDE
     Indication: Pain
     Dosage: 180 MG (30 MG,EVERY 4 HOURS, AS NEEDED)
     Route: 048
     Dates: start: 20170823
  8. ONDANSETRON [Concomitant]
     Active Substance: ONDANSETRON
     Indication: Nausea
     Dosage: UNK
     Route: 048
     Dates: start: 20150711
  9. DEFERASIROX [Concomitant]
     Active Substance: DEFERASIROX
     Indication: Chelation therapy
     Dosage: 1080 MG (1080 MG,1 IN 1 D)
     Route: 048
     Dates: start: 20160907
  10. PROMETHAZINE [Concomitant]
     Active Substance: PROMETHAZINE HYDROCHLORIDE
     Indication: Nausea
     Dosage: UNK
     Route: 054
     Dates: start: 20160924
  11. CEFOXITIN [Concomitant]
     Active Substance: CEFOXITIN SODIUM
     Indication: Bacteraemia
     Dosage: UNK
     Route: 042
     Dates: start: 20170804
  12. AZITHROMYCIN [Concomitant]
     Active Substance: AZITHROMYCIN
     Indication: Bacteraemia
     Dosage: UNK
     Route: 048
     Dates: start: 20170804
  13. MORPHINE [Concomitant]
     Active Substance: MORPHINE
     Indication: Product used for unknown indication
     Dosage: 30 MG
     Route: 048
     Dates: start: 20200217
  14. VENETOCLAX [Concomitant]
     Active Substance: VENETOCLAX
     Indication: Acute myeloid leukaemia
     Dosage: UNK
     Route: 048
     Dates: start: 20210409
  15. POSACONAZOLE [Concomitant]
     Active Substance: POSACONAZOLE
     Indication: Infection prophylaxis
     Dosage: UNK
     Route: 048
     Dates: start: 20210409
  16. DOXYCYCLINE [Concomitant]
     Active Substance: DOXYCYCLINE
     Indication: Yersinia infection
     Dosage: UNK
     Route: 048
     Dates: start: 20210830

REACTIONS (8)
  - Acute myeloid leukaemia recurrent [Fatal]
  - Respiratory failure [Fatal]
  - Pulmonary embolism [Unknown]
  - Acute myeloid leukaemia [Recovered/Resolved with Sequelae]
  - Adenovirus infection [Unknown]
  - Vomiting [Unknown]
  - Pruritus [Unknown]
  - Pneumonia [Unknown]

NARRATIVE: CASE EVENT DATE: 20210201
